FAERS Safety Report 13263928 (Version 1)
Quarter: 2017Q1

REPORT INFORMATION
  Report Type: Spontaneous
  Country: FR (occurrence: FR)
  Receive Date: 20170223
  Receipt Date: 20170223
  Transmission Date: 20170428
  Serious: Yes (Other)
  Sender: FDA-Public Use
  Company Number: FR-ROCHE-1892939

PATIENT
  Age: 55 Year
  Sex: Female

DRUGS (8)
  1. CORTANCYL [Concomitant]
     Active Substance: PREDNISONE
     Route: 065
  2. CACIT D3 [Concomitant]
     Active Substance: CALCIUM\CHOLECALCIFEROL
  3. ZELBORAF [Concomitant]
     Active Substance: VEMURAFENIB
     Route: 065
  4. COTELLIC [Suspect]
     Active Substance: COBIMETINIB
     Indication: ERDHEIM-CHESTER DISEASE
     Route: 048
     Dates: start: 201602
  5. TAFINLAR [Suspect]
     Active Substance: DABRAFENIB MESYLATE
     Indication: ERDHEIM-CHESTER DISEASE
     Route: 048
     Dates: start: 20150719
  6. KAYEXALATE [Concomitant]
     Active Substance: SODIUM POLYSTYRENE SULFONATE
  7. LANTUS [Concomitant]
     Active Substance: INSULIN GLARGINE
     Dosage: INSULINE
     Route: 065
  8. NOVORAPID [Concomitant]
     Active Substance: INSULIN ASPART

REACTIONS (1)
  - Cutaneous sarcoidosis [Not Recovered/Not Resolved]

NARRATIVE: CASE EVENT DATE: 201605
